FAERS Safety Report 9320537 (Version 1)
Quarter: 2013Q2

REPORT INFORMATION
  Report Type: Spontaneous
  Country: US (occurrence: US)
  Receive Date: 20130531
  Receipt Date: 20130531
  Transmission Date: 20140414
  Serious: Yes (Other)
  Sender: FDA-Public Use
  Company Number: US-AMGEN-USASP2013038115

PATIENT
  Age: 85 Year
  Sex: Female

DRUGS (3)
  1. PROLIA [Suspect]
     Indication: OSTEOPOROSIS
     Dosage: UNK
  2. COUMADIN                           /00014802/ [Concomitant]
  3. PRADAXA [Concomitant]

REACTIONS (7)
  - Haemorrhage [Unknown]
  - Haematochezia [Unknown]
  - Gingival infection [Not Recovered/Not Resolved]
  - Asthenia [Unknown]
  - Blood count abnormal [Recovered/Resolved]
  - Bone density abnormal [Unknown]
  - Gingival pain [Unknown]
